FAERS Safety Report 5384155-0 (Version None)
Quarter: 2007Q3

REPORT INFORMATION
  Report Type: 
  Country: None (occurrence: None)
  Receive Date: 20070711
  Receipt Date: 20070702
  Transmission Date: 20080115
  Serious: Yes (Other)
  Sender: FDA-Public Use
  Company Number: BE-AMGEN-US232872

PATIENT
  Age: 45 Year
  Sex: Female

DRUGS (1)
  1. ENBREL [Suspect]
     Indication: SPONDYLOARTHROPATHY
     Dosage: NOT PROVIDED
     Route: 058
     Dates: end: 20070601

REACTIONS (1)
  - CHRONIC MYELOID LEUKAEMIA [None]
